FAERS Safety Report 4527222-3 (Version None)
Quarter: 2004Q4

REPORT INFORMATION
  Report Type: 
  Country: None (occurrence: None)
  Receive Date: 20041215
  Receipt Date: 20041122
  Transmission Date: 20050328
  Serious: Yes (Hospitalization)
  Sender: FDA-Public Use
  Company Number: PHHO2004DE16824

PATIENT
  Sex: Female
  Weight: 53 kg

DRUGS (1)
  1. VOLTAREN [Suspect]
     Indication: THROMBOPHLEBITIS SUPERFICIAL

REACTIONS (2)
  - DUODENAL STENOSIS [None]
  - GASTRIC OPERATION [None]
